FAERS Safety Report 7032265-4 (Version None)
Quarter: 2010Q4

REPORT INFORMATION
  Report Type: 
  Country: None (occurrence: None)
  Receive Date: 20101007
  Receipt Date: 20100926
  Transmission Date: 20110411
  Serious: No
  Sender: FDA-Public Use
  Company Number: US-B.I. PHARMACEUTICALS,INC./RIDGEFIELD-2010-BP-10907BP

PATIENT
  Sex: Male

DRUGS (3)
  1. SPIRIVA [Suspect]
     Indication: CHRONIC OBSTRUCTIVE PULMONARY DISEASE
     Dosage: 18 MCG
     Route: 055
     Dates: start: 20100924
  2. OXYCODONE [Concomitant]
     Indication: PAIN
     Dosage: 30 MG
  3. DIAZEPAM [Concomitant]
     Indication: MUSCLE SPASMS

REACTIONS (1)
  - FATIGUE [None]
